FAERS Safety Report 9889011 (Version 1)
Quarter: 2014Q1

REPORT INFORMATION
  Report Type: Spontaneous
  Country: US (occurrence: None)
  Receive Date: 20140207
  Receipt Date: 20140207
  Transmission Date: 20141002
  Serious: Yes (Hospitalization)
  Sender: FDA-Public Use
  Company Number: UTC-044000

PATIENT
  Age: 46 Year
  Sex: Female

DRUGS (2)
  1. REMODULIN (5 MILLIGRAM/MILLILITERS, INJECTION FOR INFUSION) (TREPROSTINIL SODIUM) [Suspect]
     Indication: COR PULMONALE CHRONIC
     Dosage: 77.76 UG/KG (0.054 UG/KG, 1 IN 1 MIN), SUBCUTANEOUS
     Route: 058
     Dates: start: 20100506
  2. REVATIO (SILDENAFIL CITRATE) (UNKNOWN) (SILDENAFIL CITRATE) [Concomitant]

REACTIONS (3)
  - Drug dose omission [None]
  - Medication error [None]
  - Device occlusion [None]
